FAERS Safety Report 5167081-1 (Version None)
Quarter: 2006Q4

REPORT INFORMATION
  Report Type: 
  Country: None (occurrence: None)
  Receive Date: 20061129
  Receipt Date: 20061120
  Transmission Date: 20070319
  Serious: Yes (Other)
  Sender: FDA-Public Use
  Company Number: 2006140933

PATIENT
  Age: 76 Year
  Sex: Male

DRUGS (5)
  1. NORVASC [Suspect]
     Dosage: ORAL
     Route: 048
  2. TEGRETOL [Concomitant]
  3. SUNRYTHM (PILSICAINIDE HYDROCHLORIDE) [Concomitant]
  4. LOSARTAN POTASSIUM [Concomitant]
  5. LASIX [Concomitant]

REACTIONS (2)
  - BLOOD PRESSURE INCREASED [None]
  - DRUG INTERACTION [None]
